FAERS Safety Report 6713737-6 (Version None)
Quarter: 2010Q2

REPORT INFORMATION
  Report Type: 
  Country: None (occurrence: None)
  Receive Date: 20100506
  Receipt Date: 20100430
  Transmission Date: 20101027
  Serious: Yes (Other)
  Sender: FDA-Public Use
  Company Number: US-B.I. PHARMACEUTICALS,INC./RIDGEFIELD-2010-BP-04992BP

PATIENT
  Age: 45 Year
  Sex: Female

DRUGS (4)
  1. DULCOLAX [Suspect]
     Indication: COLONOSCOPY
     Dosage: 10 MG
     Route: 048
     Dates: start: 20100405
  2. HALFLYTELY [Suspect]
     Indication: COLONOSCOPY
     Route: 048
     Dates: start: 20100405
  3. MULTI-VITAMINS [Concomitant]
  4. CALTRATE [Concomitant]

REACTIONS (2)
  - COLITIS ISCHAEMIC [None]
  - MUSCLE SPASMS [None]
